FAERS Safety Report 25649363 (Version 1)
Quarter: 2025Q3

REPORT INFORMATION
  Report Type: Spontaneous
  Country: US (occurrence: None)
  Receive Date: 20250806
  Receipt Date: 20250806
  Transmission Date: 20251021
  Serious: Yes (Hospitalization)
  Sender: FDA-CTU
  Company Number: None

PATIENT
  Age: 63 Year
  Sex: Male
  Weight: 92.76 kg

DRUGS (1)
  1. IOHEXOL [Suspect]
     Active Substance: IOHEXOL
     Dates: end: 20250624

REACTIONS (3)
  - Upper respiratory tract infection [None]
  - Pneumonia [None]
  - Infection in an immunocompromised host [None]

NARRATIVE: CASE EVENT DATE: 20250708
